FAERS Safety Report 4286002-7 (Version None)
Quarter: 2004Q1

REPORT INFORMATION
  Report Type: 
  Country: None (occurrence: None)
  Receive Date: 20040203
  Receipt Date: 20040119
  Transmission Date: 20041129
  Serious: Yes (Hospitalization)
  Sender: FDA-Public Use
  Company Number: 233933

PATIENT
  Age: 12 Year
  Sex: Male
  Weight: 27 kg

DRUGS (1)
  1. NORDITROPIN [Suspect]
     Indication: DWARFISM
     Dates: start: 19980902

REACTIONS (3)
  - ABASIA [None]
  - ARTHRALGIA [None]
  - OSTEOMYELITIS [None]
